FAERS Safety Report 20856024 (Version 1)
Quarter: 2022Q2

REPORT INFORMATION
  Report Type: Spontaneous
  Country: CO (occurrence: CO)
  Receive Date: 20220520
  Receipt Date: 20220520
  Transmission Date: 20220720
  Serious: Yes (Other)
  Sender: FDA-Public Use
  Company Number: CO-AMGEN-COLSP2022075975

PATIENT
  Age: 54 Year
  Sex: Female
  Weight: 80 kg

DRUGS (6)
  1. MVASI [Suspect]
     Active Substance: BEVACIZUMAB-AWWB
     Indication: Glioblastoma
     Dosage: 800 MILLIGRAM
     Route: 042
     Dates: start: 20200908
  2. DEXAMETHASONE PHOSPHATE [Concomitant]
     Active Substance: DEXAMETHASONE PHOSPHATE
     Indication: Glioblastoma
     Dosage: 8 MILLIGRAM/2ML
     Route: 042
     Dates: start: 20200908
  3. IRINOTECAN [Concomitant]
     Active Substance: IRINOTECAN
     Indication: Glioblastoma
     Dosage: 264.6 MILLIGRAM
     Route: 042
     Dates: start: 20200908
  4. ONDANSETRON [Concomitant]
     Active Substance: ONDANSETRON
     Indication: Glioblastoma
     Dosage: 16 MILLIGRAM
     Route: 042
     Dates: start: 20200908
  5. ATROPINE SULFATE [Concomitant]
     Active Substance: ATROPINE SULFATE
     Indication: Glioblastoma
     Dosage: 1 MILLIGRAM/ML
     Route: 030
     Dates: start: 20200908
  6. PEGFILGRASTIM [Concomitant]
     Active Substance: PEGFILGRASTIM
     Indication: Glioblastoma
     Dosage: 6 MILLIGRAM
     Route: 058
     Dates: start: 20200908

REACTIONS (2)
  - Glioblastoma [Unknown]
  - Respiratory tract infection [Recovered/Resolved]

NARRATIVE: CASE EVENT DATE: 20211001
